FAERS Safety Report 6267717-8 (Version None)
Quarter: 2009Q3

REPORT INFORMATION
  Report Type: 
  Country: None (occurrence: None)
  Receive Date: 20090714
  Receipt Date: 20090706
  Transmission Date: 20100115
  Serious: Yes (Other)
  Sender: FDA-Public Use
  Company Number: PHHY2009AU24296

PATIENT
  Sex: Male

DRUGS (14)
  1. ACLASTA [Suspect]
     Indication: OSTEOPOROSIS
     Dosage: UNK
     Dates: start: 20090504, end: 20090511
  2. CALCIUM [Concomitant]
  3. VITAMIN D [Concomitant]
  4. ALLEGRON [Concomitant]
     Dosage: 25 MG, TID
  5. ALLOPURINOL [Concomitant]
     Dosage: 300 MG, QD, 1 MANE
  6. COVERSYL [Concomitant]
     Dosage: 5 MG, BID
  7. METFORMIN HYDROCHLORIDE [Concomitant]
     Dosage: 500 MG, QD, 1 MANE
  8. EZETROL [Concomitant]
     Dosage: 10 MG, QD, 1 MANE
  9. LIPIDIL [Concomitant]
     Dosage: 145 MG, QD
  10. ACETAMINOPHEN W/ CODEINE [Concomitant]
     Dosage: 1-2 TID, PRN
  11. PARACETAMOL [Concomitant]
     Dosage: 665 MG, 2 TID, PRN
  12. PANAFCORT [Concomitant]
     Dosage: 5 MG, TID
  13. PANAMAX [Concomitant]
     Dosage: 500 MG, 2 QID, PRN
  14. PLAVIX [Concomitant]
     Dosage: 75 MG, QD

REACTIONS (6)
  - ARTHRALGIA [None]
  - ASTHENIA [None]
  - C-REACTIVE PROTEIN INCREASED [None]
  - MYALGIA [None]
  - RED BLOOD CELL SEDIMENTATION RATE INCREASED [None]
  - VERTIGO [None]
